FAERS Safety Report 15791994 (Version 2)
Quarter: 2019Q1

REPORT INFORMATION
  Report Type: Not Available
  Country: US (occurrence: US)
  Receive Date: 20190106
  Receipt Date: 20190115
  Transmission Date: 20190417
  Serious: No
  Sender: FDA-Public Use
  Company Number: US-NEUROCRINE BIOSCIENCES INC.-2018NBI03664

PATIENT
  Age: 73 Year
  Sex: Female

DRUGS (2)
  1. BOTOX [Suspect]
     Active Substance: ONABOTULINUMTOXINA
     Indication: PRODUCT USED FOR UNKNOWN INDICATION
     Dates: start: 20181223
  2. INGREZZA [Suspect]
     Active Substance: VALBENAZINE
     Indication: TARDIVE DYSKINESIA
     Route: 048
     Dates: start: 20181220

REACTIONS (8)
  - Eyelid function disorder [Unknown]
  - Balance disorder [Unknown]
  - Vision blurred [Unknown]
  - Dyskinesia [Unknown]
  - Mastication disorder [Unknown]
  - Dysphagia [Unknown]
  - Speech disorder [Unknown]
  - Diplopia [Unknown]

NARRATIVE: CASE EVENT DATE: 201812
